FAERS Safety Report 6116068-0 (Version None)
Quarter: 2009Q1

REPORT INFORMATION
  Report Type: 
  Country: None (occurrence: None)
  Receive Date: 20090314
  Receipt Date: 20081211
  Transmission Date: 20090719
  Serious: No
  Sender: FDA-Public Use
  Company Number: US-ABBOTT-08P-163-0492558-00

PATIENT
  Sex: Male

DRUGS (3)
  1. HUMIRA [Suspect]
     Indication: PSORIASIS
     Route: 058
     Dates: start: 20080701
  2. ACNE MEDICATION [Concomitant]
     Indication: ACNE
     Route: 061
  3. HYDROXYZINE [Concomitant]
     Indication: PRURITUS
     Route: 048

REACTIONS (1)
  - TUBERCULIN TEST POSITIVE [None]
